FAERS Safety Report 5515868-5 (Version None)
Quarter: 2007Q4

REPORT INFORMATION
  Report Type: 
  Country: None (occurrence: None)
  Receive Date: 20071109
  Receipt Date: 20071101
  Transmission Date: 20080405
  Serious: Yes (Hospitalization)
  Sender: FDA-Public Use
  Company Number: 2007SP022234

PATIENT
  Weight: 70.2 kg

DRUGS (2)
  1. PEG-INTRON [Suspect]
     Indication: HEPATITIS C
  2. RIBAVIRIN [Suspect]
     Indication: HEPATITIS C
     Dosage: ; PO
     Route: 048

REACTIONS (4)
  - HYPERGLYCAEMIA [None]
  - METABOLIC ACIDOSIS [None]
  - NAUSEA [None]
  - VOMITING [None]
